FAERS Safety Report 11347527 (Version 1)
Quarter: 2015Q3

REPORT INFORMATION
  Report Type: Spontaneous
  Country: US (occurrence: US)
  Receive Date: 20150803
  Receipt Date: 20150803
  Transmission Date: 20151125
  Serious: No
  Sender: FDA-Public Use
  Company Number: US-ELI_LILLY_AND_COMPANY-US201107005106

PATIENT
  Sex: Female

DRUGS (4)
  1. STRATTERA [Suspect]
     Active Substance: ATOMOXETINE HYDROCHLORIDE
     Dosage: 80 MG, QD
     Dates: start: 20110707
  2. STRATTERA [Suspect]
     Active Substance: ATOMOXETINE HYDROCHLORIDE
     Dosage: 80 MG, QD
     Dates: end: 201106
  3. STRATTERA [Suspect]
     Active Substance: ATOMOXETINE HYDROCHLORIDE
     Indication: ATTENTION DEFICIT/HYPERACTIVITY DISORDER
     Dosage: 10 MG, QD
     Dates: start: 201103
  4. BUPROPION. [Concomitant]
     Active Substance: BUPROPION
     Dosage: 150 MG, UNKNOWN
     Dates: end: 20110617

REACTIONS (3)
  - Drug dose omission [Recovered/Resolved]
  - Intentional product misuse [Recovered/Resolved]
  - Rash papular [Not Recovered/Not Resolved]
